FAERS Safety Report 4534966-6 (Version None)
Quarter: 2004Q4

REPORT INFORMATION
  Report Type: 
  Country: None (occurrence: None)
  Receive Date: 20041222
  Receipt Date: 20040927
  Transmission Date: 20050328
  Serious: No
  Sender: FDA-Public Use
  Company Number: US-BRISTOL-MYERS SQUIBB COMPANY-12713343

PATIENT
  Age: 75 Year
  Sex: Male
  Weight: 88 kg

DRUGS (4)
  1. PRAVACHOL [Suspect]
     Indication: BLOOD CHOLESTEROL INCREASED
     Dosage: WAS PRESCRIBED 20 MG FOR 4 YEARS AND 40 MG FOR SIX MONTHS
     Route: 048
  2. ASPIRIN [Concomitant]
  3. MULTI-VITAMIN [Concomitant]
  4. PREVACID [Concomitant]

REACTIONS (1)
  - MYALGIA [None]
